FAERS Safety Report 8720613 (Version 2)
Quarter: 2015Q1

REPORT INFORMATION
  Report Type: Report from Study
  Country: US (occurrence: US)
  Receive Date: 20120813
  Receipt Date: 20150331
  Transmission Date: 20150721
  Serious: Yes (Hospitalization)
  Sender: FDA-Public Use
  Company Number: US-ROCHE-1099246

PATIENT
  Sex: Male

DRUGS (3)
  1. ACTIVASE [Suspect]
     Active Substance: ALTEPLASE
     Indication: ACUTE MYOCARDIAL INFARCTION
     Dosage: 6 MG BOLUS; 54 MG FOR FIRST HOUR AND 20 MG THE NEXT HOUR AND 5 MG  EVRY HOUR FOR NEXT 4 HOURS FOR TO
     Route: 042
  2. ACTIVASE [Suspect]
     Active Substance: ALTEPLASE
     Route: 065
  3. ACTIVASE [Suspect]
     Active Substance: ALTEPLASE
     Indication: ARRHYTHMIA
     Route: 065

REACTIONS (3)
  - Arcus lipoides [Unknown]
  - Ventricular extrasystoles [Unknown]
  - Heart sounds abnormal [Unknown]
